FAERS Safety Report 8339948-4 (Version None)
Quarter: 2012Q2

REPORT INFORMATION
  Report Type: 
  Country: None (occurrence: None)
  Receive Date: 20120507
  Receipt Date: 20120427
  Transmission Date: 20120825
  Serious: Yes (Other)
  Sender: FDA-Public Use
  Company Number: US-ASTELLAS-2011US004860

PATIENT
  Age: 64 Year
  Sex: Female
  Weight: 60 kg

DRUGS (12)
  1. AZD6244 HYDROGEN SULFATE [Suspect]
     Indication: LUNG ADENOCARCINOMA
     Dosage: 150 MG, UID/QD
     Route: 048
     Dates: start: 20110615, end: 20110808
  2. ERLOTINIB HYDROCHLORIDE [Suspect]
     Dosage: 100 MG, UID/QD
     Route: 048
     Dates: end: 20120416
  3. LOPERAMIDE [Concomitant]
     Indication: PRODUCT USED FOR UNKNOWN INDICATION
     Dosage: UNK
     Route: 065
  4. AZD6244 HYDROGEN SULFATE [Suspect]
     Dosage: 150 MG, UID/QD
     Route: 048
     Dates: start: 20110816
  5. ERLOTINIB HYDROCHLORIDE [Suspect]
     Dosage: 50 MG, UID/QD
     Route: 048
     Dates: start: 20110707, end: 20110808
  6. AZD6244 HYDROGEN SULFATE [Suspect]
     Dosage: 150 MG, UID/QD
     Route: 048
     Dates: end: 20120417
  7. ERLOTINIB HYDROCHLORIDE [Suspect]
     Indication: LUNG ADENOCARCINOMA
     Dosage: 100 MG, QHS
     Route: 048
     Dates: start: 20110615
  8. ZOFRAN [Concomitant]
     Indication: PRODUCT USED FOR UNKNOWN INDICATION
     Dosage: UNK
     Route: 065
  9. CLINDAMYCIN [Concomitant]
     Indication: PRODUCT USED FOR UNKNOWN INDICATION
     Dosage: UNK
     Route: 061
  10. AZD6244 HYDROGEN SULFATE [Suspect]
     Dosage: 75 MG, UID/QD
     Route: 048
     Dates: start: 20111109, end: 20111206
  11. ERLOTINIB HYDROCHLORIDE [Suspect]
     Dosage: 50 MG, UID/QD
     Route: 048
     Dates: start: 20110816
  12. ERLOTINIB HYDROCHLORIDE [Suspect]
     Dosage: 50 MG, UID/QD
     Route: 048
     Dates: start: 20111109, end: 20111205

REACTIONS (7)
  - BLOOD CREATININE INCREASED [None]
  - UPPER RESPIRATORY TRACT INFECTION [None]
  - BLOOD CREATINE PHOSPHOKINASE INCREASED [None]
  - DIARRHOEA [None]
  - FATIGUE [None]
  - URINARY TRACT INFECTION [None]
  - INCORRECT DOSE ADMINISTERED [None]
